FAERS Safety Report 15476692 (Version 1)
Quarter: 2018Q4

REPORT INFORMATION
  Report Type: Spontaneous
  Country: DE (occurrence: DE)
  Receive Date: 20181009
  Receipt Date: 20181009
  Transmission Date: 20190205
  Serious: Yes (Hospitalization, Other)
  Sender: FDA-Public Use
  Company Number: DE-DRREDDYS-GER/GER/18/0104504

PATIENT
  Age: 41 Year
  Sex: Male
  Weight: 69 kg

DRUGS (6)
  1. PANTOPRAZOLE [Concomitant]
     Active Substance: PANTOPRAZOLE
     Indication: PANCREATIC FAILURE
     Dosage: 1-0-0
     Route: 048
  2. VITAMIN B DUO [Concomitant]
     Indication: PROPHYLAXIS
     Dosage: 1-0-1
     Route: 048
  3. CIPROFLOXACIN. [Suspect]
     Active Substance: CIPROFLOXACIN
     Indication: ASYMPTOMATIC BACTERIURIA
     Dosage: 500MG-0-500MG
     Route: 048
     Dates: start: 20180829, end: 20180830
  4. KREON 25000 [Concomitant]
     Active Substance: PANCRELIPASE
     Indication: PANCREATIC FAILURE
     Dosage: 1-1-1
  5. LACTULOSE SIRUP [Concomitant]
     Indication: HEPATIC ENCEPHALOPATHY PROPHYLAXIS
     Dosage: 1 MB BEI BEDARF
     Route: 048
  6. CIPROFLOXACIN. [Suspect]
     Active Substance: CIPROFLOXACIN
     Indication: URINARY TRACT INFECTION

REACTIONS (2)
  - Seizure [Recovering/Resolving]
  - Somnolence [Recovering/Resolving]

NARRATIVE: CASE EVENT DATE: 20180830
